FAERS Safety Report 8823122 (Version 2)
Quarter: 2012Q4

REPORT INFORMATION
  Report Type: Report from Study
  Country: DE (occurrence: DE)
  Receive Date: 20121003
  Receipt Date: 20121012
  Transmission Date: 20130627
  Serious: Yes (Death, Hospitalization)
  Sender: FDA-Public Use
  Company Number: DE-CELGENEUS-062-50794-12092917

PATIENT
  Age: 73 Year
  Sex: Female
  Weight: 91 kg

DRUGS (1)
  1. VIDAZA [Suspect]
     Indication: REFRACTORY ANEMIA WITH AN EXCESS OF BLASTS
     Dosage: 144mg
     Route: 058
     Dates: start: 20120827, end: 20120904

REACTIONS (1)
  - Myelodysplastic syndrome [Fatal]
